FAERS Safety Report 8366224-6 (Version None)
Quarter: 2012Q2

REPORT INFORMATION
  Report Type: 
  Country: None (occurrence: None)
  Receive Date: 20120517
  Receipt Date: 20120511
  Transmission Date: 20120825
  Serious: Yes (Hospitalization)
  Sender: FDA-Public Use
  Company Number: PHEH2012US010052

PATIENT
  Sex: Male

DRUGS (10)
  1. ANDROGEL [Suspect]
  2. SIMVASTATIN [Concomitant]
     Indication: BLOOD CHOLESTEROL INCREASED
     Dosage: 40 MG, UNK
  3. ALLOPURINOL [Concomitant]
     Indication: GOUT
     Dosage: 150 MG, UNK
     Dates: start: 20111201
  4. LEXAPRO [Concomitant]
     Indication: DEPRESSION
     Dosage: 10 MG, UNK
     Dates: start: 20111201
  5. LAMISIL [Suspect]
     Indication: ONYCHOMYCOSIS
     Route: 062
     Dates: start: 20120201, end: 20120430
  6. NASACORT AQ [Concomitant]
     Indication: MULTIPLE ALLERGIES
     Dates: start: 20110101
  7. ASPIRIN [Concomitant]
     Indication: CORONARY ARTERIAL STENT INSERTION
     Dosage: 81 MG, UNK
     Dates: start: 20070101
  8. TESTIM [Suspect]
     Indication: BLOOD TESTOSTERONE DECREASED
     Dosage: 50 MG, ONE AND HALF TUBES DAILY
     Dates: start: 20120201
  9. FOSAMAX [Concomitant]
     Indication: OSTEOPOROSIS
     Dosage: 70 MG, WEEKLY
     Dates: start: 20111201
  10. CITRACAL [Concomitant]
     Indication: OSTEOPOROSIS
     Dates: start: 20080101

REACTIONS (2)
  - JOINT SWELLING [None]
  - THROMBOSIS [None]
